FAERS Safety Report 18706685 (Version 1)
Quarter: 2021Q1

REPORT INFORMATION
  Report Type: Spontaneous
  Country: DE (occurrence: DE)
  Receive Date: 20210106
  Receipt Date: 20210106
  Transmission Date: 20210419
  Serious: Yes (Disabling)
  Sender: FDA-Public Use
  Company Number: None

PATIENT
  Age: 27 Year
  Sex: Male
  Weight: 82 kg

DRUGS (2)
  1. BERBERINE SAFFRON [Concomitant]
  2. CITALOPRAM [Suspect]
     Active Substance: CITALOPRAM HYDROBROMIDE
     Indication: DEPRESSION

REACTIONS (8)
  - Libido decreased [None]
  - Blunted affect [None]
  - Premature ejaculation [None]
  - Male orgasmic disorder [None]
  - Hypogeusia [None]
  - Depression [None]
  - Hyposmia [None]
  - Sexual dysfunction [None]
